FAERS Safety Report 9339144 (Version 3)
Quarter: 2013Q3

REPORT INFORMATION
  Report Type: Report from Study
  Country: US (occurrence: US)
  Receive Date: 20130610
  Receipt Date: 20130923
  Transmission Date: 20140515
  Serious: Yes (Life-Threatening, Hospitalization, Disabling)
  Sender: FDA-Public Use
  Company Number: US-JNJFOC-20130601606

PATIENT
  Age: 62 Year
  Sex: Female

DRUGS (11)
  1. REMICADE [Suspect]
     Indication: RHEUMATOID ARTHRITIS
     Dosage: 3 VIALS (PREVIOUSLY REPORTED AS 6 VIALS)
     Route: 042
     Dates: end: 20130408
  2. CONTRAST DYE [Suspect]
     Indication: ANGIOGRAM
     Route: 065
  3. ALLOPURINOL [Concomitant]
     Dosage: STILL TAKING
     Route: 065
  4. TIZANIDINE [Concomitant]
     Indication: HYPOTONIA
     Route: 065
  5. TRIIODOTHYRONINE [Concomitant]
     Indication: THYROID DISORDER
     Route: 065
  6. AMLODIPINE [Concomitant]
     Route: 065
     Dates: end: 20130414
  7. ATENOLOL [Concomitant]
     Route: 065
     Dates: end: 20130414
  8. FUROSEMIDE [Concomitant]
     Route: 065
     Dates: end: 20130414
  9. LISINOPRIL [Concomitant]
     Indication: BLOOD PRESSURE
     Route: 065
     Dates: end: 20130414
  10. LENTE INSULIN [Concomitant]
     Route: 065
  11. THYROXINE [Concomitant]
     Route: 065

REACTIONS (4)
  - Cardiac failure congestive [Recovered/Resolved with Sequelae]
  - Acute myocardial infarction [Recovered/Resolved with Sequelae]
  - Renal failure [Recovered/Resolved with Sequelae]
  - Chest pain [Recovering/Resolving]
